FAERS Safety Report 9013105 (Version 1)
Quarter: 2013Q1

REPORT INFORMATION
  Report Type: Spontaneous
  Country: US (occurrence: US)
  Receive Date: 20130114
  Receipt Date: 20130114
  Transmission Date: 20140127
  Serious: Yes (Life-Threatening, Other)
  Sender: FDA-Public Use
  Company Number: US-MERCK-1301USA001871

PATIENT
  Age: 9 Year
  Sex: Male

DRUGS (8)
  1. SINGULAIR [Suspect]
  2. CAFFEINE [Concomitant]
     Indication: ASTHMA
  3. [THERAPY UNSPECIFIED] [Concomitant]
     Indication: ILL-DEFINED DISORDER
  4. NASALCROM [Suspect]
     Indication: UPPER RESPIRATORY TRACT INFECTION
  5. NASONEX [Suspect]
  6. ADVAIR [Suspect]
     Dosage: INHALATION NASAL
  7. ZYRTEC [Suspect]
  8. ZITHROMAX [Suspect]
     Route: 048

REACTIONS (20)
  - Obsessive-compulsive disorder [Unknown]
  - Aptyalism [Unknown]
  - Depressed mood [Unknown]
  - Dysphagia [Unknown]
  - Dyspnoea [Unknown]
  - Fear [Unknown]
  - Gastrooesophageal reflux disease [Unknown]
  - Hallucination, auditory [Unknown]
  - Anxiety [Unknown]
  - Nightmare [Unknown]
  - Upper respiratory tract infection [Unknown]
  - Panic attack [Unknown]
  - Upper-airway cough syndrome [Unknown]
  - Pruritus [Unknown]
  - Sensation of foreign body [Unknown]
  - Tachycardia [Unknown]
  - Throat tightness [Unknown]
  - Tic [Unknown]
  - Tourette^s disorder [Unknown]
  - Insomnia [Unknown]
